FAERS Safety Report 7332045-6 (Version None)
Quarter: 2011Q1

REPORT INFORMATION
  Report Type: 
  Country: None (occurrence: None)
  Receive Date: 20110222
  Receipt Date: 20110204
  Transmission Date: 20110831
  Serious: Yes (Other)
  Sender: FDA-Public Use
  Company Number: INT_00020_2011

PATIENT
  Age: 30 Year
  Sex: Female

DRUGS (1)
  1. AMPICILLIN/SULBACTAM [Suspect]
     Indication: CHORIOAMNIONITIS
     Dosage: 1 G 1X INTRAVENOUS (NOT OTHERWISE SPECIFIED)
     Route: 042

REACTIONS (6)
  - CYANOSIS [None]
  - URTICARIA [None]
  - DRUG EXPOSURE DURING PREGNANCY [None]
  - CAESAREAN SECTION [None]
  - CARDIAC ARREST [None]
  - LOSS OF CONSCIOUSNESS [None]
